FAERS Safety Report 24379449 (Version 2)
Quarter: 2024Q4

REPORT INFORMATION
  Report Type: Spontaneous
  Country: US (occurrence: US)
  Receive Date: 20240930
  Receipt Date: 20241007
  Transmission Date: 20250115
  Serious: No
  Sender: ROCHE
  Company Number: US-ROCHE-10000090651

PATIENT
  Sex: Male

DRUGS (1)
  1. ACTEMRA ACTPEN [Suspect]
     Active Substance: TOCILIZUMAB
     Indication: Giant cell arteritis
     Dosage: ONGOING, STRENGTH 162 MG/0.9 ML
     Route: 058
     Dates: start: 202201

REACTIONS (5)
  - Lymphoedema [Unknown]
  - Pruritus [Unknown]
  - Peripheral swelling [Unknown]
  - Swelling face [Unknown]
  - Weight decreased [Unknown]
